FAERS Safety Report 12605767 (Version 1)
Quarter: 2016Q3

REPORT INFORMATION
  Report Type: Spontaneous
  Country: None (occurrence: BR)
  Receive Date: 20160729
  Receipt Date: 20160729
  Transmission Date: 20161109
  Serious: Yes (Hospitalization)
  Sender: FDA-Public Use
  Company Number: BR-ALEMBIC PHARMACUETICALS LIMITED-2014SCAL000279

PATIENT

DRUGS (5)
  1. NIFEDIPINE. [Interacting]
     Active Substance: NIFEDIPINE
     Indication: HYPERTENSION
     Dosage: UNK
  2. DOXAZOSIN [Interacting]
     Active Substance: DOXAZOSIN\DOXAZOSIN MESYLATE
     Indication: HYPERTENSION
     Dosage: 2 MG, QD
  3. HYDROCHLOROTHIAZIDE. [Suspect]
     Active Substance: HYDROCHLOROTHIAZIDE
     Indication: HYPERTENSION
     Dosage: 25 MG, QD
  4. MEGLUMINE ANTIMONATE [Suspect]
     Active Substance: MEGLUMINE ANTIMONIATE
     Indication: PRODUCT USED FOR UNKNOWN INDICATION
  5. DICLOFENAC [Interacting]
     Active Substance: DICLOFENAC
     Indication: MYALGIA
     Dosage: 50 MG, WEEK

REACTIONS (20)
  - Arthralgia [None]
  - Pancreatic enzymes increased [None]
  - Electrocardiogram QT prolonged [None]
  - Dry mouth [None]
  - Dizziness [None]
  - Toxicity to various agents [Recovered/Resolved]
  - Ototoxicity [None]
  - Gait disturbance [None]
  - Tinnitus [None]
  - Weight decreased [None]
  - Skin exfoliation [None]
  - Decreased appetite [None]
  - Fall [None]
  - Blood glucose increased [None]
  - Myalgia [None]
  - Hepatic enzyme increased [None]
  - Herpes zoster [None]
  - Nephropathy toxic [None]
  - Tremor [None]
  - Nystagmus [None]
